FAERS Safety Report 10144104 (Version 1)
Quarter: 2014Q2

REPORT INFORMATION
  Report Type: Spontaneous
  Country: US (occurrence: US)
  Receive Date: 20140430
  Receipt Date: 20140430
  Transmission Date: 20141212
  Serious: Yes (Hospitalization)
  Sender: FDA-Public Use
  Company Number: US-B.I. PHARMACEUTICALS,INC./RIDGEFIELD-2014-BI-18842BP

PATIENT
  Age: 27 Year
  Sex: Female

DRUGS (2)
  1. PRADAXA [Suspect]
     Indication: INTRACARDIAC THROMBUS
     Route: 048
     Dates: start: 201309, end: 201403
  2. NADOLOL [Concomitant]
     Indication: LONG QT SYNDROME
     Dosage: 120 MG
     Route: 048
     Dates: start: 2008

REACTIONS (1)
  - Intracardiac thrombus [Recovered/Resolved]
